FAERS Safety Report 6458733-1 (Version None)
Quarter: 2009Q4

REPORT INFORMATION
  Report Type: 
  Country: None (occurrence: None)
  Receive Date: 20091127
  Receipt Date: 20091113
  Transmission Date: 20100525
  Serious: Yes (Hospitalization)
  Sender: FDA-Public Use
  Company Number: CN-ROCHE-668769

PATIENT
  Sex: Male
  Weight: 53 kg

DRUGS (3)
  1. PEG-INTERFERON ALFA 2A (RO 25-8310) [Suspect]
     Indication: DRUG USE FOR UNKNOWN INDICATION
     Dosage: DOSAGE FORM: INJECTION. DATE OF LAST DOSE PRIOR TO SAE: 19 OCTOBER 2009.
     Route: 058
     Dates: start: 20090928
  2. PEG-INTERFERON ALFA 2A (RO 25-8310) [Suspect]
     Route: 058
     Dates: start: 20091022
  3. RIBAVIRIN [Suspect]
     Indication: DRUG USE FOR UNKNOWN INDICATION
     Dosage: DATE OF LAST DOSE PRIOR TO SAE: 19 OCTOBER 2009
     Route: 048
     Dates: start: 20090928, end: 20091019

REACTIONS (1)
  - MITOCHONDRIAL TOXICITY [None]
